FAERS Safety Report 5047458-5 (Version None)
Quarter: 2006Q3

REPORT INFORMATION
  Report Type: 
  Country: None (occurrence: None)
  Receive Date: 20060703
  Receipt Date: 20060620
  Transmission Date: 20061208
  Serious: Yes (Other)
  Sender: FDA-Public Use
  Company Number: PHBS2006US09334

PATIENT
  Age: 6 Year
  Sex: Female

DRUGS (5)
  1. CYCLOSPORINE [Suspect]
     Indication: CORD BLOOD TRANSPLANT THERAPY
  2. METHYLPREDNISOLONE [Suspect]
     Indication: CORD BLOOD TRANSPLANT THERAPY
  3. CYCLOPHOSPHAMIDE [Concomitant]
  4. ANTITHYMOCYTE IMMUNOGLOBULIN [Suspect]
  5. IRRADIATION [Concomitant]

REACTIONS (4)
  - NEPHROBLASTOMA [None]
  - NODULE [None]
  - RENAL MASS [None]
  - RENAL NECROSIS [None]
